FAERS Safety Report 14067135 (Version 1)
Quarter: 2017Q4

REPORT INFORMATION
  Report Type: Spontaneous
  Country: US (occurrence: US)
  Receive Date: 20171007
  Receipt Date: 20171007
  Transmission Date: 20180321
  Serious: Yes (Hospitalization)
  Sender: FDA-Public Use
  Company Number: None

PATIENT
  Sex: Female
  Weight: 60.75 kg

DRUGS (5)
  1. LEVOTHYROXINE. [Concomitant]
     Active Substance: LEVOTHYROXINE
  2. BISOPROLO [Concomitant]
  3. MIRTAZAPINE. [Concomitant]
     Active Substance: MIRTAZAPINE
  4. HYOSCYAMINE. [Suspect]
     Active Substance: HYOSCYAMINE
     Indication: PELVIC PAIN
     Dosage: ?          QUANTITY:30 TABLET(S);?
     Route: 048
     Dates: start: 20171006, end: 20171006
  5. CIPROFFOXACN [Concomitant]

REACTIONS (7)
  - Peripheral coldness [None]
  - Feeling cold [None]
  - Headache [None]
  - Pain [None]
  - Dyspnoea [None]
  - Palpitations [None]
  - Confusional state [None]

NARRATIVE: CASE EVENT DATE: 20171006
